FAERS Safety Report 15481047 (Version 1)
Quarter: 2018Q4

REPORT INFORMATION
  Report Type: Spontaneous
  Country: IN (occurrence: IN)
  Receive Date: 20181010
  Receipt Date: 20181010
  Transmission Date: 20190205
  Serious: Yes (Hospitalization, Other)
  Sender: FDA-Public Use
  Company Number: IN-ABBVIE-18P-078-2506799-00

PATIENT
  Age: 30 Year
  Sex: Female

DRUGS (5)
  1. THYRONORM [Suspect]
     Active Substance: LEVOTHYROXINE
     Indication: HYPOTHYROIDISM
     Route: 048
     Dates: start: 20180207
  2. THYRONORM [Suspect]
     Active Substance: LEVOTHYROXINE
     Dosage: THYRONORM 75 MCG FOR 6 DAYS A WEEK
     Route: 048
     Dates: start: 20180918
  3. THYRONORM [Suspect]
     Active Substance: LEVOTHYROXINE
     Dosage: ONCE A WEEK (SUNDAY)
     Route: 048
     Dates: start: 20180918
  4. THYRONORM [Suspect]
     Active Substance: LEVOTHYROXINE
     Dosage: FOR 1.5 MONTHS
     Route: 048
  5. STEMETIL [Suspect]
     Active Substance: PROCHLORPERAZINE MALEATE
     Indication: PRODUCT USED FOR UNKNOWN INDICATION
     Route: 065

REACTIONS (7)
  - Dizziness [Not Recovered/Not Resolved]
  - Exposure during pregnancy [Unknown]
  - Foetal death [Unknown]
  - Asthenia [Not Recovered/Not Resolved]
  - Syncope [Not Recovered/Not Resolved]
  - Sleep disorder [Unknown]
  - Abortion induced [Unknown]

NARRATIVE: CASE EVENT DATE: 2018
